FAERS Safety Report 4501564-X (Version None)
Quarter: 2004Q3

REPORT INFORMATION
  Report Type: 
  Country: None (occurrence: None)
  Receive Date: 20040928
  Receipt Date: 20040826
  Transmission Date: 20050211
  Serious: No
  Sender: FDA-Public Use
  Company Number: 04P-163-0271583-00

PATIENT
  Age: 67 Year
  Sex: Female
  Weight: 90.7194 kg

DRUGS (5)
  1. HUMIRA [Suspect]
     Indication: RHEUMATOID ARTHRITIS
     Dosage: 40 MG, 1 IN WK, SUBCUTANEOUS
     Route: 058
     Dates: start: 20040301
  2. SERTRALINE HYDROCHLORIDE [Concomitant]
  3. LEVOTHYROXINE SODIUM [Concomitant]
  4. PREDNISONE [Concomitant]
  5. MULTIVITAMIN [Concomitant]

REACTIONS (1)
  - ASTHENIA [None]
